APPROVED DRUG PRODUCT: PRAVASTATIN SODIUM
Active Ingredient: PRAVASTATIN SODIUM
Strength: 40MG
Dosage Form/Route: TABLET;ORAL
Application: A207068 | Product #003 | TE Code: AB
Applicant: ACCORD HEALTHCARE INC
Approved: Nov 17, 2016 | RLD: No | RS: No | Type: RX